FAERS Safety Report 22602637 (Version 4)
Quarter: 2023Q4

REPORT INFORMATION
  Report Type: Spontaneous
  Country: US (occurrence: US)
  Receive Date: 20230615
  Receipt Date: 20231226
  Transmission Date: 20240110
  Serious: No
  Sender: FDA-Public Use
  Company Number: US-JNJFOC-20230612771

PATIENT
  Age: 62 Year
  Sex: Female
  Weight: 81.72 kg

DRUGS (2)
  1. TREMFYA [Suspect]
     Active Substance: GUSELKUMAB
     Indication: Psoriasis
     Route: 065
     Dates: start: 202209
  2. TREMFYA [Suspect]
     Active Substance: GUSELKUMAB
     Route: 065

REACTIONS (3)
  - Device issue [Unknown]
  - Product dose omission issue [Unknown]
  - Injection site pain [Unknown]

NARRATIVE: CASE EVENT DATE: 20230603
